FAERS Safety Report 19369806 (Version 7)
Quarter: 2021Q4

REPORT INFORMATION
  Report Type: Report from Study
  Country: US (occurrence: US)
  Receive Date: 20210603
  Receipt Date: 20211210
  Transmission Date: 20220304
  Serious: Yes (Other)
  Sender: FDA-Public Use
  Company Number: US-BIOVITRUM-2021US4487

PATIENT
  Age: 68 Year
  Sex: Female

DRUGS (7)
  1. KINERET [Suspect]
     Active Substance: ANAKINRA
     Indication: Product used for unknown indication
     Route: 058
     Dates: start: 20200520
  2. KINERET [Suspect]
     Active Substance: ANAKINRA
     Route: 058
     Dates: start: 20210607
  3. PREDNISONE [Concomitant]
     Active Substance: PREDNISONE
  4. VITAMINS [Concomitant]
     Active Substance: VITAMINS
  5. Omega [Concomitant]
  6. FOLIC ACID [Concomitant]
     Active Substance: FOLIC ACID
  7. CALCIUM [Concomitant]
     Active Substance: CALCIUM

REACTIONS (16)
  - Kidney infection [Unknown]
  - Condition aggravated [Unknown]
  - Cough [Unknown]
  - Myalgia [Unknown]
  - Asthenia [Recovering/Resolving]
  - Somnolence [Recovering/Resolving]
  - Urinary incontinence [Unknown]
  - Urinary tract infection [Unknown]
  - Adverse reaction [Unknown]
  - Gait disturbance [Unknown]
  - Feeling abnormal [Unknown]
  - Injection site scar [Unknown]
  - Injection site reaction [Unknown]
  - Injection site pain [Unknown]
  - Injection site erythema [Unknown]
  - Injection site rash [Unknown]

NARRATIVE: CASE EVENT DATE: 20210803
